FAERS Safety Report 15360377 (Version 3)
Quarter: 2019Q2

REPORT INFORMATION
  Report Type: Spontaneous
  Country: US (occurrence: US)
  Receive Date: 20180907
  Receipt Date: 20190417
  Transmission Date: 20190711
  Serious: Yes (Death)
  Sender: FDA-Public Use
  Company Number: US-PFIZER INC-2018362214

PATIENT
  Age: 79 Year
  Sex: Male

DRUGS (1)
  1. LYRICA [Suspect]
     Active Substance: PREGABALIN
     Indication: PAIN
     Dosage: 300 MG, 2X/DAY (QTY 180)

REACTIONS (2)
  - Feeling abnormal [Unknown]
  - Death [Fatal]

NARRATIVE: CASE EVENT DATE: 20181212
